FAERS Safety Report 9382971 (Version 2)
Quarter: 2013Q4

REPORT INFORMATION
  Report Type: Spontaneous
  Country: GB (occurrence: GB)
  Receive Date: 20130703
  Receipt Date: 20131030
  Transmission Date: 20140711
  Serious: Yes (Hospitalization)
  Sender: FDA-Public Use
  Company Number: PHHY2013GB068495

PATIENT
  Age: 15 Year
  Sex: Female
  Weight: 96 kg

DRUGS (4)
  1. METFORMIN [Suspect]
     Indication: POLYCYSTIC OVARIES
     Route: 048
  2. MEFENAMIC ACID [Suspect]
     Indication: ABDOMINAL PAIN
     Dosage: UNK (PATIENT TAKING FOR ANY ABDOMINAL PAIN TWO/THREE TIMES PER DAY TWICE A WEEK)
     Route: 048
     Dates: start: 201206, end: 201305
  3. RANITIDINE [Concomitant]
  4. MOVICOL [Concomitant]

REACTIONS (5)
  - Pancreatitis acute [Not Recovered/Not Resolved]
  - Dizziness [Unknown]
  - Nausea [Unknown]
  - Vomiting [Unknown]
  - Abdominal pain [Unknown]
